FAERS Safety Report 6291976-9 (Version None)
Quarter: 2009Q3

REPORT INFORMATION
  Report Type: 
  Country: None (occurrence: None)
  Receive Date: 20090729
  Receipt Date: 20080310
  Transmission Date: 20100115
  Serious: Yes (Other)
  Sender: FDA-Public Use
  Company Number: 1022556-2009-00048

PATIENT
  Sex: Male

DRUGS (1)
  1. DOXYLAMINE SUCCINATE [Suspect]
     Indication: SLEEP DISORDER THERAPY
     Dosage: 6-10 TABS, QD, PO
     Route: 048

REACTIONS (2)
  - BLOOD PRESSURE INCREASED [None]
  - RENAL DISORDER [None]
